FAERS Safety Report 25939653 (Version 1)
Quarter: 2025Q4

REPORT INFORMATION
  Report Type: Spontaneous
  Country: CN (occurrence: CN)
  Receive Date: 20251020
  Receipt Date: 20251020
  Transmission Date: 20260117
  Serious: Yes (Life-Threatening)
  Sender: NOVARTIS
  Company Number: CN-002147023-NVSC2025CN161350

PATIENT
  Age: 57 Year
  Sex: Male

DRUGS (1)
  1. COSENTYX [Suspect]
     Active Substance: SECUKINUMAB
     Indication: Psoriasis
     Dosage: UNK (TWO INJECTION EVERY TIME) (ROUTE: INJECT)
     Route: 050
     Dates: start: 20250923

REACTIONS (2)
  - Feeling abnormal [Unknown]
  - Dyspnoea [Unknown]
